FAERS Safety Report 13794717 (Version 3)
Quarter: 2020Q3

REPORT INFORMATION
  Report Type: Report from Study
  Country: JP (occurrence: JP)
  Receive Date: 20170726
  Receipt Date: 20170811
  Transmission Date: 20201105
  Serious: Yes (Hospitalization)
  Sender: FDA-Public Use
  Company Number: JP-ROCHE-1968561

PATIENT
  Age: 60 Year
  Sex: Female

DRUGS (64)
  1. PARIET [Concomitant]
     Active Substance: RABEPRAZOLE SODIUM
     Route: 048
     Dates: end: 20160323
  2. HANGESHASHINTO [Concomitant]
     Active Substance: HERBALS
     Dosage: DOSAGE IS UNCERTAIN.
     Route: 048
     Dates: end: 20140919
  3. L CARTIN FF [Concomitant]
     Active Substance: LEVOCARNITINE
     Dosage: DOSAGE IS UNCERTAIN.
     Route: 048
     Dates: end: 20141029
  4. TERPERAN [Concomitant]
     Active Substance: METOCLOPRAMIDE HYDROCHLORIDE
     Dosage: DOSAGE IS UNCERTAIN.
     Route: 048
     Dates: start: 20141227, end: 20150614
  5. HERBAL NOS [Concomitant]
     Active Substance: HERBALS
     Dosage: DOSAGE IS UNCERTAIN.
     Route: 048
     Dates: start: 20150615, end: 20150810
  6. NAUZELIN [Concomitant]
     Active Substance: DOMPERIDONE
     Dosage: DOSAGE IS UNCERTAIN.
     Route: 048
     Dates: start: 20150808, end: 20150815
  7. NEXIUM [Concomitant]
     Active Substance: ESOMEPRAZOLE MAGNESIUM
     Indication: PROPHYLAXIS
     Dosage: DOSAGE IS UNCERTAIN.
     Route: 048
     Dates: start: 20160324
  8. GOREISAN [Concomitant]
     Active Substance: HERBALS
     Dosage: DOSAGE IS UNCERTAIN.
     Route: 065
     Dates: start: 20161005, end: 20170322
  9. CHLOROMYCETIN [Concomitant]
     Active Substance: CHLORAMPHENICOL
     Dosage: DOSAGE IS UNCERTAIN.
     Route: 003
     Dates: start: 20170513, end: 20170513
  10. INTAL [Concomitant]
     Active Substance: CROMOLYN SODIUM
     Dosage: DOSAGE IS UNCERTAIN.
     Route: 055
     Dates: start: 20170718, end: 20170718
  11. ALECTINIB. [Suspect]
     Active Substance: ALECTINIB
     Indication: NON-SMALL CELL LUNG CANCER
     Route: 048
     Dates: start: 20160904, end: 20160904
  12. ALECTINIB. [Suspect]
     Active Substance: ALECTINIB
     Indication: NON-SMALL CELL LUNG CANCER
     Route: 048
     Dates: start: 20170311, end: 20170311
  13. HANGESHASHINTO [Concomitant]
     Active Substance: HERBALS
     Dosage: DOSAGE IS UNCERTAIN.
     Route: 048
     Dates: start: 20141227, end: 20150419
  14. CODEINE PHOSPHATE [Concomitant]
     Active Substance: CODEINE PHOSPHATE
     Dosage: DOSAGE IS UNCERTAIN.?REPORTED AS CODEINE PHOSPHATE HYDRATE
     Route: 065
  15. NOVAMIN (JAPAN) [Concomitant]
     Route: 048
     Dates: start: 20170719
  16. HUSCODE [Concomitant]
     Active Substance: CHLORPHENIRAMINE MALEATE\DIHYDROCODEINE PHOSPHATE\METHYLEPHEDRINE HYDROCHLORIDE, DL-
     Dosage: DOSAGE IS UNCERTAIN.
     Route: 048
     Dates: start: 20150314, end: 20150319
  17. INFLUENZA HA VACCINE [Concomitant]
     Active Substance: INFLUENZA VIRUS VACCINE
     Dosage: DOSAGE IS UNCERTAIN.
     Route: 065
     Dates: start: 20161201, end: 20161201
  18. DAIKENCHUTO [Concomitant]
     Active Substance: HERBALS
     Indication: DIARRHOEA
     Dosage: DOSAGE IS UNCERTAIN.
     Route: 048
     Dates: start: 20170322
  19. CEFCAPENE PIVOXIL HYDROCHLORIDE [Concomitant]
     Active Substance: CEFCAPENE PIVOXIL HYDROCHLORIDE
     Dosage: DOSAGE IS UNCERTAIN.?REPORTED AS CEFCAPENE PIVOXIL HYDROCHLORIDE HYDRATE
     Route: 048
     Dates: start: 20150623, end: 20150626
  20. LOXONIN [Concomitant]
     Active Substance: LOXOPROFEN SODIUM
     Dosage: DOSAGE IS UNCERTAIN.
     Route: 065
     Dates: start: 20170513, end: 20170517
  21. SENNOSIDE [Concomitant]
     Active Substance: SENNOSIDES
     Dosage: DOSAGE IS UNCERTAIN.
     Route: 048
     Dates: start: 20140929
  22. CELECOX [Concomitant]
     Active Substance: CELECOXIB
     Indication: PAIN
     Route: 048
     Dates: end: 20140909
  23. TAKEPRON [Concomitant]
     Active Substance: LANSOPRAZOLE
     Dosage: DOSAGE IS UNCERTAIN.
     Route: 048
     Dates: start: 20140922, end: 20141105
  24. TERPERAN [Concomitant]
     Active Substance: METOCLOPRAMIDE HYDROCHLORIDE
     Dosage: DOSAGE IS UNCERTAIN.
     Route: 048
     Dates: start: 20141105, end: 20141226
  25. TRAVELMIN (DIPHENHYDRAMINE SALICYLATE/DIPROPHYLLINE) [Concomitant]
     Active Substance: DIPHENHYDRAMINE SALICYLATE\DYPHYLLINE
     Dosage: DOSAGE IS UNCERTAIN.
     Route: 048
     Dates: start: 20160222, end: 20160517
  26. PULMICORT RESPULES [Concomitant]
     Active Substance: BUDESONIDE
     Dosage: DOSAGE IS UNCERTAIN.
     Route: 055
     Dates: start: 20170718, end: 20170718
  27. ALECTINIB. [Suspect]
     Active Substance: ALECTINIB
     Indication: NON-SMALL CELL LUNG CANCER
     Route: 048
     Dates: start: 20160711, end: 20160711
  28. HANGESHASHINTO [Concomitant]
     Active Substance: HERBALS
     Dosage: DOSAGE IS UNCERTAIN.
     Route: 048
     Dates: start: 20150810, end: 20150928
  29. CARBOCISTEINE [Concomitant]
     Active Substance: CARBOCYSTEINE
     Dosage: DOSAGE IS UNCERTAIN.
     Route: 048
     Dates: start: 20150314, end: 20150319
  30. GENINAX [Concomitant]
     Active Substance: GARENOXACIN MESYLATE
     Dosage: DOSAGE IS UNCERTAIN.
     Route: 048
     Dates: start: 20150314, end: 20150319
  31. ECABET SODIUM [Concomitant]
     Active Substance: ECABET SODIUM
     Dosage: DOSAGE IS UNCERTAIN.
     Route: 048
     Dates: start: 20150808, end: 20150815
  32. METHADERM [Concomitant]
     Dosage: DOSAGE IS UNCERTAIN.
     Route: 003
     Dates: start: 20151130, end: 20151231
  33. NEUROTROPIN (JAPAN) [Concomitant]
     Indication: HYPOAESTHESIA
     Dosage: DOSAGE IS UNCERTAIN.
     Route: 048
     Dates: start: 20160615
  34. MAGMITT [Concomitant]
     Active Substance: MAGNESIUM OXIDE
     Dosage: DOSAGE IS UNCERTAIN.
     Route: 048
     Dates: start: 20140912
  35. ALECTINIB. [Suspect]
     Active Substance: ALECTINIB
     Indication: NON-SMALL CELL LUNG CANCER
     Route: 048
     Dates: start: 20160712, end: 20160903
  36. ALECTINIB. [Suspect]
     Active Substance: ALECTINIB
     Indication: NON-SMALL CELL LUNG CANCER
     Route: 048
     Dates: start: 20170312, end: 20170718
  37. ALECTINIB. [Suspect]
     Active Substance: ALECTINIB
     Route: 048
     Dates: start: 20170729
  38. HANGESHASHINTO [Concomitant]
     Active Substance: HERBALS
     Dosage: DOSAGE IS UNCERTAIN.
     Route: 048
     Dates: start: 20141105, end: 20141226
  39. OXINORM (JAPAN) [Concomitant]
     Active Substance: OXYCODONE HYDROCHLORIDE
     Dosage: DOSAGE IS UNCERTAIN.
     Route: 048
     Dates: end: 20141125
  40. NOVAMIN (JAPAN) [Concomitant]
     Dosage: DOSAGE IS UNCERTAIN.
     Route: 048
     Dates: start: 20141003, end: 20141105
  41. CEFTRIAXONE SODIUM. [Concomitant]
     Active Substance: CEFTRIAXONE SODIUM
     Dosage: DOSAGE IS UNCERTAIN.
     Route: 042
     Dates: start: 20150314, end: 20150314
  42. CEFTRIAXONE SODIUM. [Concomitant]
     Active Substance: CEFTRIAXONE SODIUM
     Dosage: DOSAGE IS UNCERTAIN.
     Route: 042
     Dates: start: 20170718, end: 20170718
  43. PRIMPERAN [Concomitant]
     Active Substance: METOCLOPRAMIDE HYDROCHLORIDE
     Dosage: DOSAGE IS UNCERTAIN.
     Route: 065
     Dates: start: 20150808, end: 20150808
  44. METHADERM [Concomitant]
     Dosage: DOSAGE IS UNCERTAIN.
     Route: 003
     Dates: start: 20170614, end: 20170614
  45. HOCHUEKKITO [Concomitant]
     Active Substance: HERBALS
     Dosage: DOSAGE IS UNCERTAIN.
     Route: 065
     Dates: start: 20170419
  46. FLOMOX (JAPAN) [Concomitant]
     Active Substance: CEFCAPENE PIVOXIL HYDROCHLORIDE
     Dosage: DOSAGE IS UNCERTAIN.
     Route: 048
     Dates: start: 20170513, end: 20170516
  47. ALECTINIB. [Suspect]
     Active Substance: ALECTINIB
     Indication: NON-SMALL CELL LUNG CANCER
     Route: 048
     Dates: start: 20140908, end: 20160710
  48. OXYCONTIN [Suspect]
     Active Substance: OXYCODONE HYDROCHLORIDE
     Indication: PAIN
     Route: 048
     Dates: start: 20140929, end: 20141029
  49. CELECOX [Concomitant]
     Active Substance: CELECOXIB
     Dosage: DOSAGE IS UNCERTAIN.
     Route: 048
     Dates: start: 20141006
  50. CALONAL [Concomitant]
     Active Substance: ACETAMINOPHEN
     Indication: CANCER PAIN
     Dosage: DOSAGE DURING A DAY: 1200 (UNIT UNCERTAINITY)
     Route: 048
  51. OXINORM (JAPAN) [Concomitant]
     Active Substance: OXYCODONE HYDROCHLORIDE
     Dosage: DOSAGE IS UNCERTAIN.
     Route: 048
     Dates: start: 20150927, end: 20161231
  52. FENTOS [Concomitant]
     Active Substance: FENTANYL
     Dosage: DOSAGE IS UNCERTAIN.
     Route: 062
     Dates: start: 20141029, end: 20141030
  53. LIDOCAINE. [Concomitant]
     Active Substance: LIDOCAINE
     Dosage: DOSAGE IS UNCERTAIN.
     Route: 065
     Dates: start: 20150623, end: 20150623
  54. HERBAL NOS [Concomitant]
     Active Substance: HERBALS
     Dosage: DOSAGE IS UNCERTAIN.
     Route: 048
     Dates: start: 20150928, end: 20151018
  55. TRAMCET [Concomitant]
     Active Substance: ACETAMINOPHEN\TRAMADOL
     Indication: PAIN
     Route: 048
     Dates: start: 20170712, end: 20170717
  56. VENETLIN [Concomitant]
     Active Substance: ALBUTEROL SULFATE
     Dosage: DOSAGE IS UNCERTAIN.
     Route: 055
     Dates: start: 20170718, end: 20170718
  57. CLENAFIN [Concomitant]
     Active Substance: EFINACONAZOLE
     Dosage: DOSAGE IS UNCERTAIN.
     Route: 061
     Dates: start: 20151130
  58. ALECTINIB. [Suspect]
     Active Substance: ALECTINIB
     Indication: NON-SMALL CELL LUNG CANCER
     Route: 048
     Dates: start: 20160905, end: 20170310
  59. OXYCONTIN [Suspect]
     Active Substance: OXYCODONE HYDROCHLORIDE
     Route: 048
     Dates: start: 20141105
  60. AMITIZA [Concomitant]
     Active Substance: LUBIPROSTONE
     Dosage: DOSAGE IS UNCERTAIN.
     Route: 048
     Dates: start: 20141006, end: 20150222
  61. SALAZAC [Concomitant]
     Dosage: DOSAGE IS UNCERTAIN.
     Route: 048
     Dates: start: 20150314, end: 20150319
  62. ADEFURONIC [Concomitant]
     Active Substance: DICLOFENAC SODIUM
     Dosage: DOSAGE IS UNCERTAIN.
     Route: 065
     Dates: start: 20170513, end: 20170513
  63. ACELIO [Concomitant]
     Active Substance: ACETAMINOPHEN
     Dosage: DOSAGE IS UNCERTAIN.
     Route: 042
     Dates: start: 20170721, end: 20170721
  64. BORRAZA?G [Concomitant]
     Active Substance: LIDOCAINE\TRIBENOSIDE
     Dosage: DOSAGE IS UNCERTAIN.
     Route: 003
     Dates: start: 20170422

REACTIONS (1)
  - Pneumonia [Recovered/Resolved]

NARRATIVE: CASE EVENT DATE: 20170718
